FAERS Safety Report 6604647-3 (Version None)
Quarter: 2010Q1

REPORT INFORMATION
  Report Type: 
  Country: None (occurrence: None)
  Receive Date: 20100226
  Receipt Date: 20100224
  Transmission Date: 20100710
  Serious: Yes (Other)
  Sender: FDA-Public Use
  Company Number: CH-ROCHE-676381

PATIENT
  Sex: Female
  Weight: 63 kg

DRUGS (7)
  1. XELODA [Suspect]
     Route: 048
     Dates: start: 20091001, end: 20091201
  2. EPIRUBICIN [Concomitant]
     Dosage: DOSE REGIMEN: 3 TOTAL
     Route: 040
     Dates: start: 20091001, end: 20091201
  3. CISPLATIN [Concomitant]
     Dosage: DOSAGE REGIMEN: 3 TOTAL
     Route: 041
     Dates: start: 20091001, end: 20091201
  4. DEXAMETHASONE [Concomitant]
  5. EMEND [Concomitant]
  6. PRIMPERAN [Concomitant]
  7. ZOFRAN [Concomitant]

REACTIONS (1)
  - HYPERLIPIDAEMIA [None]
